FAERS Safety Report 6303572-5 (Version None)
Quarter: 2009Q3

REPORT INFORMATION
  Report Type: 
  Country: None (occurrence: None)
  Receive Date: 20090810
  Receipt Date: 20090727
  Transmission Date: 20100115
  Serious: Yes (Hospitalization)
  Sender: FDA-Public Use
  Company Number: ES-MYLANLABS-2009S1013233

PATIENT
  Age: 39 Year
  Sex: Male

DRUGS (3)
  1. VENLAFAXINE HYDROCHLORIDE [Suspect]
     Indication: DEPRESSION
     Dosage: 75 MG/12HOURS
  2. DIPOTASSIUM CLORAZEPATE [Suspect]
     Indication: DEPRESSION
     Dosage: 3 TABLETS/DAY
  3. LORAZEPAM [Concomitant]
     Indication: DEPRESSION
     Dosage: 1 MG/24 HOURS

REACTIONS (1)
  - HEPATITIS CHOLESTATIC [None]
